FAERS Safety Report 7040464-0 (Version None)
Quarter: 2010Q4

REPORT INFORMATION
  Report Type: 
  Country: None (occurrence: None)
  Receive Date: 20101012
  Receipt Date: 20101005
  Transmission Date: 20110411
  Serious: Yes (Life-Threatening, Disabling)
  Sender: FDA-Public Use
  Company Number: US-GILEAD-2010-0032356

PATIENT
  Sex: Female

DRUGS (1)
  1. LETAIRIS [Suspect]
     Indication: PULMONARY ARTERIAL HYPERTENSION
     Dates: start: 20100110, end: 20101005

REACTIONS (3)
  - ANAEMIA [None]
  - DYSPNOEA [None]
  - OXYGEN SATURATION DECREASED [None]
